FAERS Safety Report 15238215 (Version 4)
Quarter: 2019Q1

REPORT INFORMATION
  Report Type: Spontaneous
  Country: FR (occurrence: FR)
  Receive Date: 20180803
  Receipt Date: 20190322
  Transmission Date: 20190417
  Serious: Yes (Other)
  Sender: FDA-Public Use
  Company Number: FR-MYLANLABS-2018M1058817

PATIENT
  Age: 89 Year
  Sex: Male

DRUGS (11)
  1. RAMIPRIL. [Suspect]
     Active Substance: RAMIPRIL
     Indication: ACUTE CORONARY SYNDROME
     Dosage: 1.25 MG, QD IN THE MORNING
     Route: 048
     Dates: start: 20180521
  2. ATORVASTATIN ARROW [Suspect]
     Active Substance: ATORVASTATIN CALCIUM
     Indication: ACUTE CORONARY SYNDROME
     Dosage: 80 MG, QD AT NIGHT
     Route: 048
     Dates: start: 20180521
  3. KARDEGIC [Suspect]
     Active Substance: ASPIRIN DL-LYSINE
     Indication: ACUTE CORONARY SYNDROME
     Dosage: 75 MG, QD IN THE MORNING
     Route: 048
     Dates: start: 20180521
  4. BISOCE 1,25 MG, COMPRIM? PELLICUL? [Suspect]
     Active Substance: BISOPROLOL FUMARATE
     Indication: ACUTE CORONARY SYNDROME
     Dosage: 1.25 MG, BID IN THE MORNING AND IN THE AFTERNOON
     Route: 048
     Dates: start: 20180521
  5. ZYTIGA [Concomitant]
     Active Substance: ABIRATERONE ACETATE
     Dosage: 1000 MILLIGRAM
     Route: 048
  6. BISOPROLOL [Suspect]
     Active Substance: BISOPROLOL
     Indication: ACUTE CORONARY SYNDROME
     Dosage: 2.5 MILLIGRAM, QD
     Route: 048
     Dates: start: 20180521
  7. BRILIQUE [Suspect]
     Active Substance: TICAGRELOR
     Indication: ACUTE CORONARY SYNDROME
     Dosage: 180 MG, QD
     Route: 048
     Dates: start: 20180521, end: 20180521
  8. PREDNISONE. [Concomitant]
     Active Substance: PREDNISONE
     Indication: PROSTATE CANCER
     Dosage: 5 MILLIGRAM, QD
     Route: 048
  9. ZYTIGA [Concomitant]
     Active Substance: ABIRATERONE ACETATE
     Indication: PROSTATE CANCER
     Dosage: 4 CP DE 250 MG ? 16H
     Route: 048
  10. PREDNISONE. [Concomitant]
     Active Substance: PREDNISONE
     Dosage: 10 MILLIGRAM, QD ((1 CP DE 5 MG MATIN ET MIDI)
     Route: 048
  11. TRIATEC                            /00885601/ [Suspect]
     Active Substance: RAMIPRIL
     Indication: ACUTE CORONARY SYNDROME
     Dosage: 1.25 MG, QD, IN THE MORNING
     Route: 048
     Dates: start: 20180521

REACTIONS (1)
  - Bradycardia [Recovered/Resolved]

NARRATIVE: CASE EVENT DATE: 20180521
